FAERS Safety Report 10532902 (Version 1)
Quarter: 2014Q4

REPORT INFORMATION
  Report Type: Report from Study
  Country: US (occurrence: US)
  Receive Date: 20141022
  Receipt Date: 20141022
  Transmission Date: 20150529
  Serious: Yes (Hospitalization)
  Sender: FDA-Public Use
  Company Number: PHHY2014US133961

PATIENT
  Age: 77 Year
  Sex: Male

DRUGS (6)
  1. IRINOTECAN [Suspect]
     Active Substance: IRINOTECAN
     Indication: COLON CANCER
     Dosage: 120 MG/M2, UNK
     Dates: start: 20111026
  2. FLOMAX [Concomitant]
     Active Substance: TAMSULOSIN HYDROCHLORIDE
     Indication: PRODUCT USED FOR UNKNOWN INDICATION
     Route: 065
  3. BEVACIZUMAB [Suspect]
     Active Substance: BEVACIZUMAB
     Indication: COLON CANCER
     Dosage: 2.5 MG/KG,
     Dates: start: 20111026
  4. 5-FLUOROURACIL [Suspect]
     Active Substance: FLUOROURACIL
     Dosage: 1600 MG/M2, UNK
     Route: 042
  5. 5-FLUOROURACIL [Suspect]
     Active Substance: FLUOROURACIL
     Indication: COLON CANCER
     Dosage: 270 MG/M2, UNK
     Route: 040
     Dates: start: 20111026
  6. LEUCOVORIN CALCIUM. [Suspect]
     Active Substance: LEUCOVORIN CALCIUM
     Indication: COLON CANCER
     Dosage: 400 MG/M2, UNK
     Route: 065
     Dates: start: 20111026

REACTIONS (6)
  - Hepatic steatosis [Not Recovered/Not Resolved]
  - Abdominal pain [Recovered/Resolved]
  - Blood alkaline phosphatase increased [Not Recovered/Not Resolved]
  - Hepatitis [Not Recovered/Not Resolved]
  - Toxicity to various agents [Unknown]
  - Dysuria [Recovered/Resolved]

NARRATIVE: CASE EVENT DATE: 20130305
